FAERS Safety Report 4454809-9 (Version None)
Quarter: 2004Q3

REPORT INFORMATION
  Report Type: 
  Country: None (occurrence: None)
  Receive Date: 20040826
  Receipt Date: 20040426
  Transmission Date: 20050211
  Serious: No
  Sender: FDA-Public Use
  Company Number: 2004US002111

PATIENT
  Age: 51 Year
  Sex: Female
  Weight: 40.4 kg

DRUGS (6)
  1. ALOXI [Suspect]
     Indication: PROPHYLAXIS OF NAUSEA AND VOMITING
     Dosage: 0.25MG, SINGLE, IV BOLUS
     Route: 040
     Dates: start: 20040420, end: 20040420
  2. DECADRON [Concomitant]
  3. LASIX [Concomitant]
  4. TAXOTERE [Concomitant]
  5. GEMZAR [Concomitant]
  6. PROCRIT [Concomitant]

REACTIONS (1)
  - RASH MACULAR [None]
